FAERS Safety Report 5018879-1 (Version None)
Quarter: 2006Q2

REPORT INFORMATION
  Report Type: 
  Country: None (occurrence: None)
  Receive Date: 20060606
  Receipt Date: 20060526
  Transmission Date: 20061013
  Serious: Yes (Hospitalization)
  Sender: FDA-Public Use
  Company Number: 2006UW10426

PATIENT
  Age: 61 Year
  Sex: Female

DRUGS (10)
  1. IRESSA [Suspect]
     Indication: NON-SMALL CELL LUNG CANCER
     Route: 048
     Dates: start: 20060505
  2. CELEBREX [Concomitant]
     Indication: OSTEOARTHRITIS
     Route: 048
     Dates: start: 20020101
  3. IMOVANE [Concomitant]
     Indication: INSOMNIA
     Route: 048
     Dates: start: 19910101
  4. XANAX [Concomitant]
     Indication: ANXIETY
     Route: 048
     Dates: start: 19940101
  5. SYMBICORT [Concomitant]
     Indication: BRONCHIAL HYPERACTIVITY
     Route: 055
     Dates: start: 20040101
  6. DECADRON SRC [Concomitant]
     Indication: METASTASES TO CENTRAL NERVOUS SYSTEM
     Route: 048
     Dates: start: 20060131, end: 20060515
  7. LIPITOR [Concomitant]
     Indication: HYPERLIPIDAEMIA
     Route: 048
     Dates: start: 19910101
  8. SYNTHROID [Concomitant]
     Indication: HYPOPARATHYROIDISM
     Route: 048
     Dates: start: 19700101
  9. TRIMIPRAMINE MALEATE [Concomitant]
     Indication: DEPRESSION
     Route: 048
     Dates: start: 19860101
  10. CELEXA [Concomitant]
     Indication: DEPRESSION
     Route: 048
     Dates: start: 19940101

REACTIONS (3)
  - ASTHENIA [None]
  - DIARRHOEA [None]
  - PYREXIA [None]
